FAERS Safety Report 4896739-4 (Version None)
Quarter: 2006Q1

REPORT INFORMATION
  Report Type: 
  Country: None (occurrence: None)
  Receive Date: 20060131
  Receipt Date: 20060120
  Transmission Date: 20060701
  Serious: Yes (Death)
  Sender: FDA-Public Use
  Company Number: BE-JNJFOC-20051204192

PATIENT
  Age: 77 Year
  Sex: Male

DRUGS (1)
  1. CONTRAMAL RETARD [Suspect]
     Indication: OSTEOARTHRITIS
     Dosage: THERAPY WAS ONGOING FOR 15.5 TO 2 YEARS APPROX
     Route: 048

REACTIONS (2)
  - DEATH [None]
  - DRUG DEPENDENCE [None]
